FAERS Safety Report 13688335 (Version 3)
Quarter: 2017Q3

REPORT INFORMATION
  Report Type: Spontaneous
  Country: US (occurrence: US)
  Receive Date: 20170626
  Receipt Date: 20170804
  Transmission Date: 20171127
  Serious: No
  Sender: FDA-Public Use
  Company Number: US-PFIZER INC-2017068216

PATIENT
  Age: 84 Year
  Sex: Female
  Weight: 70.3 kg

DRUGS (7)
  1. IBRANCE [Suspect]
     Active Substance: PALBOCICLIB
     Dosage: UNK
     Dates: start: 201610
  2. SIMVASTATIN. [Concomitant]
     Active Substance: SIMVASTATIN
     Dosage: 20 MG, UNK
  3. LETROZOLE. [Concomitant]
     Active Substance: LETROZOLE
     Indication: BREAST CANCER METASTATIC
     Dosage: 2.5 MG, 1X/DAY [EVERY DAY, EVERY DAY]
     Dates: start: 2016
  4. IBRANCE [Suspect]
     Active Substance: PALBOCICLIB
     Indication: OVARIAN CANCER
     Dosage: 100 MG, CYCLIC (1 CAPSULE 21 DAYS ON, 7 DAYS OFF, REPEAT 28 DAYS)
     Route: 048
  5. IBRANCE [Suspect]
     Active Substance: PALBOCICLIB
     Dosage: 100 MG, UNK
  6. IBRANCE [Suspect]
     Active Substance: PALBOCICLIB
     Indication: BREAST CANCER METASTATIC
     Dosage: 100 MG, CYCLIC (1 CAP 21 DAYS ON 7 DAY OFF REPEAT Q 21 D)
  7. IBRANCE [Suspect]
     Active Substance: PALBOCICLIB
     Dosage: 150 MG, CYCLIC [ONCE A DAY FOR 21 DAYS, THEN OFF FOR 7 DAYS]
     Dates: start: 2016

REACTIONS (5)
  - Constipation [Not Recovered/Not Resolved]
  - Body height decreased [Unknown]
  - Fatigue [Unknown]
  - Hypobarism [Unknown]
  - Lethargy [Unknown]
